FAERS Safety Report 24854570 (Version 2)
Quarter: 2025Q1

REPORT INFORMATION
  Report Type: Report from Study
  Country: PY (occurrence: PY)
  Receive Date: 20250117
  Receipt Date: 20250128
  Transmission Date: 20250408
  Serious: Yes (Death, Other)
  Sender: ROCHE
  Company Number: PY-ROCHE-10000183454

PATIENT
  Age: 6 Month
  Sex: Female
  Weight: 5.6 kg

DRUGS (1)
  1. EVRYSDI [Suspect]
     Active Substance: RISDIPLAM
     Indication: Spinal muscular atrophy
     Dosage: 60MG/80 ML?RECONSTITUTED POWDER?ROUTE OF ADMINISTRATION:?NASOGASTRIC
     Route: 050
     Dates: start: 20250116

REACTIONS (4)
  - Cardiac arrest [Recovered/Resolved]
  - Dyspnoea [Unknown]
  - Cardio-respiratory arrest [Unknown]
  - Death [Fatal]

NARRATIVE: CASE EVENT DATE: 20250116
